FAERS Safety Report 8983145 (Version 1)
Quarter: 2012Q4

REPORT INFORMATION
  Report Type: 
  Country: JP (occurrence: JP)
  Receive Date: 20121224
  Receipt Date: 20121224
  Transmission Date: 20130627
  Serious: Yes (Other)
  Sender: FDA-Public Use
  Company Number: JP-ASTELLAS-2012JP011883

PATIENT
  Age: 80 Year
  Sex: Female

DRUGS (2)
  1. FUNGUARD [Suspect]
     Dosage: 50 mg, Unknown/D
     Route: 041
     Dates: start: 20121204
  2. PRODIF [Concomitant]
     Dosage: UNK
     Route: 065
     Dates: end: 20121203

REACTIONS (1)
  - Blood beta-D-glucan increased [Recovered/Resolved]
